FAERS Safety Report 24179411 (Version 1)
Quarter: 2024Q3

REPORT INFORMATION
  Report Type: Spontaneous
  Country: JP (occurrence: JP)
  Receive Date: 20240806
  Receipt Date: 20240806
  Transmission Date: 20241017
  Serious: Yes (Hospitalization)
  Sender: PFIZER
  Company Number: JP-PFIZER INC-PV202400098958

PATIENT
  Age: 6 Decade
  Sex: Male
  Weight: 85.7 kg

DRUGS (12)
  1. NIRMATRELVIR\RITONAVIR [Interacting]
     Active Substance: NIRMATRELVIR\RITONAVIR
     Indication: COVID-19 treatment
     Dosage: UNK
     Route: 048
  2. CLOZAPINE [Interacting]
     Active Substance: CLOZAPINE
     Indication: Schizophrenia
     Dosage: 350 MG, DAILY
     Route: 048
  3. ETHYL LOFLAZEPATE [Concomitant]
     Active Substance: ETHYL LOFLAZEPATE
     Dosage: 2 MG, DAILY
  4. FLUNITRAZEPAM [Concomitant]
     Active Substance: FLUNITRAZEPAM
     Dosage: 4 MG, DAILY
  5. CLONAZEPAM [Concomitant]
     Active Substance: CLONAZEPAM
     Dosage: 1 MG, DAILY
  6. EPHEDRA SINICA STEM\HERBALS [Concomitant]
     Active Substance: EPHEDRA SINICA STEM\HERBALS
     Dosage: 9 G, DAILY
  7. LITHIUM CARBONATE [Concomitant]
     Active Substance: LITHIUM CARBONATE
     Dosage: 300 MG, DAILY
  8. BOFUTSUSHOSANRYO [ANGELICA ACUTILOBA ROOT;ATRACTYLODES SPP. RHIZOME;CA [Concomitant]
     Dosage: 7.5 G, DAILY
  9. PREGABALIN [Concomitant]
     Active Substance: PREGABALIN
     Dosage: 150 MG, DAILY
  10. ORYCTOLAGUS CUNICULUS SKIN [Concomitant]
     Active Substance: ORYCTOLAGUS CUNICULUS SKIN
     Dosage: 16 UNITS/DAY
  11. BOIOGITO [ASTRAGALUS SPP. ROOT;ATRACTYLODES LANCEA RHIZOME;GLYCYRRHIZA [Concomitant]
     Dosage: 5 G, DAILY
  12. ACETAMINOPHEN [Concomitant]
     Active Substance: ACETAMINOPHEN
     Dosage: 500 MG/DOSE

REACTIONS (4)
  - Drug interaction [Unknown]
  - Seizure [Unknown]
  - Altered state of consciousness [Recovering/Resolving]
  - Antipsychotic drug level increased [Recovering/Resolving]
